FAERS Safety Report 6903280-3 (Version None)
Quarter: 2010Q3

REPORT INFORMATION
  Report Type: 
  Country: None (occurrence: None)
  Receive Date: 20100803
  Receipt Date: 20080813
  Transmission Date: 20110219
  Serious: No
  Sender: FDA-Public Use
  Company Number: US-PFIZER INC-2008069256

PATIENT
  Sex: Female
  Weight: 58.97 kg

DRUGS (19)
  1. LYRICA [Suspect]
     Indication: FIBROMYALGIA
     Route: 048
     Dates: start: 20080812, end: 20080813
  2. OXYGEN [Concomitant]
  3. ALPRAZOLAM [Concomitant]
  4. SPIRIVA [Concomitant]
  5. LASIX [Concomitant]
  6. ZAROXOLYN [Concomitant]
  7. PREDNISONE [Concomitant]
  8. SPIRONOLACTONE [Concomitant]
  9. MUCINEX [Concomitant]
  10. TYLOX [Concomitant]
  11. CLOTRIMAZOLE [Concomitant]
  12. SENOKOT [Concomitant]
  13. PROTONIX [Concomitant]
  14. COZAAR [Concomitant]
  15. POTASSIUM [Concomitant]
  16. TUMS [Concomitant]
  17. XOPENEX [Concomitant]
  18. NITROGLYCERIN [Concomitant]
  19. METRONIDAZOLE [Concomitant]

REACTIONS (4)
  - CONFUSIONAL STATE [None]
  - EYE SWELLING [None]
  - FATIGUE [None]
  - INCONTINENCE [None]
